FAERS Safety Report 10362697 (Version 2)
Quarter: 2014Q3

REPORT INFORMATION
  Report Type: Spontaneous
  Country: US (occurrence: None)
  Receive Date: 20140729
  Receipt Date: 20140822
  Transmission Date: 20150326
  Serious: Yes (Death, Hospitalization)
  Sender: FDA-Public Use
  Company Number: US-000737N

PATIENT
  Age: 66 Year
  Sex: Female
  Weight: 54.43 kg

DRUGS (15)
  1. CLONAZEPAM. [Concomitant]
     Active Substance: CLONAZEPAM
  2. LOMOTIL [Concomitant]
     Active Substance: ATROPINE SULFATE\DIPHENOXYLATE HYDROCHLORIDE
  3. DICYCLOMINE [Concomitant]
     Active Substance: DICYCLOMINE HYDROCHLORIDE
  4. HYDROCODONE [Concomitant]
     Active Substance: HYDROCODONE
  5. CAMPHORATED TINCTURE OF OPIUIM [Concomitant]
  6. HYDROMORPHONE [Concomitant]
     Active Substance: HYDROMORPHONE
  7. SOLUTION FOR PARENTERAL NUTRITION) [Concomitant]
  8. SEPTRA [Concomitant]
     Active Substance: SULFAMETHOXAZOLE\TRIMETHOPRIM
  9. MULTIVITAMINS [Concomitant]
     Active Substance: VITAMINS
  10. FOLIC ACID. [Concomitant]
     Active Substance: FOLIC ACID
  11. VITAMIN E [Concomitant]
     Active Substance: .ALPHA.-TOCOPHEROL
  12. GATTEX [Suspect]
     Active Substance: TEDUGLUTIDE\WATER
     Indication: SHORT-BOWEL SYNDROME
     Dosage: QD, SC.
     Dates: start: 20130412, end: 20130510
  13. INEXIUM [Concomitant]
     Active Substance: ESOMEPRAZOLE
  14. NADOLOL. [Concomitant]
     Active Substance: NADOLOL
  15. VALIUM [Concomitant]
     Active Substance: DIAZEPAM

REACTIONS (11)
  - Hyponatraemia [None]
  - Abdominal pain [None]
  - Pain [None]
  - Cold sweat [None]
  - Night sweats [None]
  - Weight increased [None]
  - Nausea [None]
  - Respiratory failure [None]
  - Hyperhidrosis [None]
  - Deep vein thrombosis [None]
  - Influenza like illness [None]

NARRATIVE: CASE EVENT DATE: 20130414
